FAERS Safety Report 24338090 (Version 1)
Quarter: 2024Q3

REPORT INFORMATION
  Report Type: Spontaneous
  Country: ES (occurrence: ES)
  Receive Date: 20240919
  Receipt Date: 20240919
  Transmission Date: 20241017
  Serious: Yes (Death)
  Sender: RANBAXY
  Company Number: ES-AEMPS-1547342

PATIENT
  Age: 52 Year
  Sex: Male

DRUGS (5)
  1. ALLOPURINOL [Suspect]
     Active Substance: ALLOPURINOL
     Indication: Product used for unknown indication
     Dosage: 100 MILLIGRAM, QD
     Route: 048
     Dates: start: 20240416, end: 20240526
  2. COLCHICINE [Suspect]
     Active Substance: COLCHICINE
     Indication: Product used for unknown indication
     Dosage: 0.5 MILLIGRAM, QD
     Route: 048
     Dates: start: 20240416, end: 20240526
  3. RIMSTAR [Suspect]
     Active Substance: ETHAMBUTOL\ISONIAZID\PYRAZINAMIDE\RIFAMYCIN
     Indication: Disseminated tuberculosis
     Dosage: 4 DOSAGE FORM, QD
     Route: 048
     Dates: start: 20240416, end: 20240522
  4. PREDNISONE [Concomitant]
     Active Substance: PREDNISONE
     Indication: Disseminated tuberculosis
     Dosage: 15 MILLIGRAM, QD
     Route: 048
     Dates: start: 20240505
  5. PREDNISONE [Concomitant]
     Active Substance: PREDNISONE
     Indication: Disseminated tuberculosis
     Dosage: 30 MILLIGRAM, QD
     Route: 048
     Dates: start: 20240416, end: 20240505

REACTIONS (2)
  - Hyperbilirubinaemia [Fatal]
  - Hepatitis fulminant [Fatal]

NARRATIVE: CASE EVENT DATE: 20240501
